FAERS Safety Report 13515585 (Version 1)
Quarter: 2017Q2

REPORT INFORMATION
  Report Type: Spontaneous
  Country: US (occurrence: US)
  Receive Date: 20170504
  Receipt Date: 20170504
  Transmission Date: 20170830
  Serious: No
  Sender: FDA-Public Use
  Company Number: US-009507513-1704USA014201

PATIENT
  Age: 38 Year
  Sex: Male

DRUGS (1)
  1. BELSOMRA [Suspect]
     Active Substance: SUVOREXANT
     Indication: INSOMNIA
     Dosage: 10 MG, QPM (1 TABLET IN THE EVENING)
     Route: 048

REACTIONS (3)
  - Anger [Unknown]
  - Frustration tolerance decreased [Unknown]
  - Drug ineffective [Unknown]
